FAERS Safety Report 7643917-7 (Version None)
Quarter: 2011Q3

REPORT INFORMATION
  Report Type: 
  Country: None (occurrence: None)
  Receive Date: 20110729
  Receipt Date: 20110523
  Transmission Date: 20111222
  Serious: No
  Sender: FDA-Public Use
  Company Number: US-GLAXOSMITHKLINE-A0928556A

PATIENT
  Age: 42 Year
  Sex: Female

DRUGS (3)
  1. ZYRTEC [Concomitant]
  2. SINGULAIR [Concomitant]
  3. IMITREX [Suspect]
     Indication: MIGRAINE
     Dosage: 1TAB AS REQUIRED
     Route: 048

REACTIONS (4)
  - ABDOMINAL PAIN UPPER [None]
  - CHEST PAIN [None]
  - DISCOMFORT [None]
  - MUSCULOSKELETAL PAIN [None]
